FAERS Safety Report 17631685 (Version 1)
Quarter: 2020Q2

REPORT INFORMATION
  Report Type: Spontaneous
  Country: US (occurrence: US)
  Receive Date: 20200403
  Receipt Date: 20200403
  Transmission Date: 20200713
  Serious: Yes (Other)
  Sender: FDA-Public Use
  Company Number: None

PATIENT
  Age: 90 Year
  Sex: Female
  Weight: 81.65 kg

DRUGS (10)
  1. ATORVASTATIN [Concomitant]
     Active Substance: ATORVASTATIN
  2. LISENOPRIL [Concomitant]
     Active Substance: LISINOPRIL
  3. PROBIOTIC [Concomitant]
     Active Substance: PROBIOTICS NOS
  4. AMOXICILLIN. [Concomitant]
     Active Substance: AMOXICILLIN
  5. VIT D [Concomitant]
     Active Substance: VITAMIN D NOS
  6. TOVIAZ [Suspect]
     Active Substance: FESOTERODINE FUMARATE
     Indication: NOCTURIA
     Route: 048
     Dates: start: 20200306, end: 20200311
  7. OMEGA 3 [Concomitant]
     Active Substance: OMEGA-3 FATTY ACIDS
  8. FISH OIL [Concomitant]
     Active Substance: FISH OIL
  9. MESALAMINE. [Concomitant]
     Active Substance: MESALAMINE
  10. VITAMIN B12 [Concomitant]
     Active Substance: CYANOCOBALAMIN

REACTIONS (4)
  - Hypersensitivity [None]
  - Skin discolouration [None]
  - Pain in extremity [None]
  - Varicophlebitis [None]
